FAERS Safety Report 12138436 (Version 1)
Quarter: 2016Q1

REPORT INFORMATION
  Report Type: Other
  Country: US (occurrence: US)
  Receive Date: 20160302
  Receipt Date: 20160302
  Transmission Date: 20160526
  Serious: Yes (Hospitalization, Other)
  Sender: FDA-Public Use
  Company Number: US-PURDUE PHARMA-CAN-2016-0006508

PATIENT
  Age: 18 Year
  Sex: Male

DRUGS (1)
  1. METHYLPHENIDATE HYDROCHLORIDE. [Suspect]
     Active Substance: METHYLPHENIDATE HYDROCHLORIDE
     Indication: ATTENTION DEFICIT/HYPERACTIVITY DISORDER
     Dosage: UNK
     Route: 065

REACTIONS (8)
  - Unresponsive to stimuli [Recovered/Resolved]
  - Pneumothorax [Recovered/Resolved]
  - Electrocardiogram abnormal [Unknown]
  - Leukocytosis [Unknown]
  - Pulse absent [Recovered/Resolved]
  - Hypertrophic cardiomyopathy [Unknown]
  - Sinus tachycardia [Recovered/Resolved]
  - Cardiac arrest [Recovered/Resolved]
